FAERS Safety Report 16865634 (Version 1)
Quarter: 2019Q3

REPORT INFORMATION
  Report Type: Spontaneous
  Country: US (occurrence: US)
  Receive Date: 20190930
  Receipt Date: 20190930
  Transmission Date: 20191005
  Serious: No
  Sender: FDA-Public Use
  Company Number: US-AMGEN INC.-USASP2019158646

PATIENT
  Age: 68 Year
  Sex: Female

DRUGS (4)
  1. AIMOVIG [Suspect]
     Active Substance: ERENUMAB-AOOE
     Indication: MIGRAINE
     Dosage: 70 MILLIGRAM
     Route: 065
     Dates: start: 20190922
  2. TOPAMAX [Concomitant]
     Active Substance: TOPIRAMATE
     Indication: DEPRESSION
     Dosage: 50 MILLIGRAM, QD (AT BEDTIME)
     Route: 048
  3. TRAZODONE [Concomitant]
     Active Substance: TRAZODONE HYDROCHLORIDE
     Indication: DEPRESSION
     Dosage: 250 MILLIGRAM, QD (AT BEDTIME)
  4. TRAZODONE [Concomitant]
     Active Substance: TRAZODONE HYDROCHLORIDE
     Indication: INSOMNIA

REACTIONS (1)
  - Crying [Recovered/Resolved]

NARRATIVE: CASE EVENT DATE: 20190922
